FAERS Safety Report 8605893-X (Version None)
Quarter: 2012Q3

REPORT INFORMATION
  Report Type: 
  Country: None (occurrence: None)
  Receive Date: 20120820
  Receipt Date: 20120809
  Transmission Date: 20120928
  Serious: Yes (Hospitalization)
  Sender: FDA-Public Use
  Company Number: FR-VIIV HEALTHCARE LIMITED-B0821720A

PATIENT
  Sex: Male

DRUGS (3)
  1. VIRAMUNE [Suspect]
     Indication: HIV INFECTION
     Dosage: 200MG TWICE PER DAY
     Route: 048
     Dates: start: 20120522, end: 20120612
  2. ISENTRESS [Suspect]
     Indication: HIV INFECTION
     Dosage: 400MG TWICE PER DAY
     Route: 048
     Dates: start: 20120522, end: 20120612
  3. EPIVIR [Suspect]
     Indication: HIV INFECTION
     Dosage: 150MG PER DAY
     Route: 048
     Dates: start: 20120522, end: 20120612

REACTIONS (7)
  - MALAISE [None]
  - CHROMATURIA [None]
  - HEPATOCELLULAR INJURY [None]
  - RASH GENERALISED [None]
  - PRURITUS [None]
  - FAECES DISCOLOURED [None]
  - CHOLESTASIS [None]
